FAERS Safety Report 5426436-8 (Version None)
Quarter: 2007Q3

REPORT INFORMATION
  Report Type: 
  Country: None (occurrence: None)
  Receive Date: 20070827
  Receipt Date: 20070816
  Transmission Date: 20080115
  Serious: Yes (Hospitalization)
  Sender: FDA-Public Use
  Company Number: CH-ASTRAZENECA-2007PK01761

PATIENT
  Age: 83 Year
  Sex: Male
  Weight: 60 kg

DRUGS (2)
  1. BELOC-ZOK RETARD [Suspect]
     Route: 048
     Dates: end: 20070622
  2. ATACAND [Concomitant]
     Route: 048

REACTIONS (6)
  - ATRIOVENTRICULAR BLOCK SECOND DEGREE [None]
  - BRADYCARDIA [None]
  - CAROTID ARTERIOSCLEROSIS [None]
  - LEUKOENCEPHALOPATHY [None]
  - TRANSIENT ISCHAEMIC ATTACK [None]
  - VERTEBRAL ARTERY STENOSIS [None]
